FAERS Safety Report 22044555 (Version 1)
Quarter: 2023Q1

REPORT INFORMATION
  Report Type: Spontaneous
  Country: KR (occurrence: KR)
  Receive Date: 20230228
  Receipt Date: 20230228
  Transmission Date: 20230417
  Serious: Yes (Other)
  Sender: FDA-Public Use
  Company Number: KR-ELI_LILLY_AND_COMPANY-KR202302009718

PATIENT
  Sex: Female

DRUGS (2)
  1. TERIPARATIDE [Suspect]
     Active Substance: TERIPARATIDE
     Indication: Bone pain
     Dosage: 20 UG, DAILY
     Route: 058
     Dates: start: 2013
  2. TERIPARATIDE [Suspect]
     Active Substance: TERIPARATIDE
     Indication: Pain in extremity
     Dosage: 20 UG, DAILY
     Route: 058
     Dates: start: 202206

REACTIONS (3)
  - Gastric cancer [Recovered/Resolved]
  - Pain in extremity [Not Recovered/Not Resolved]
  - Off label use [Unknown]

NARRATIVE: CASE EVENT DATE: 20220601
